FAERS Safety Report 7971120-X (Version None)
Quarter: 2011Q4

REPORT INFORMATION
  Report Type: 
  Country: None (occurrence: None)
  Receive Date: 20111212
  Receipt Date: 20111212
  Transmission Date: 20120403
  Serious: Yes (Death)
  Sender: FDA-Public Use
  Company Number: None

PATIENT
  Sex: Male
  Weight: 79.378 kg

DRUGS (1)
  1. HUMIRA [Suspect]
     Indication: RHEUMATOID ARTHRITIS
     Dosage: 1 INJECTABLE PEN
     Route: 058
     Dates: start: 20110201, end: 20111115

REACTIONS (7)
  - DYSPEPSIA [None]
  - BLOOD PRESSURE INCREASED [None]
  - GASTROOESOPHAGEAL REFLUX DISEASE [None]
  - PAIN [None]
  - UNRESPONSIVE TO STIMULI [None]
  - MYOCARDIAL INFARCTION [None]
  - RESUSCITATION [None]
